FAERS Safety Report 12800219 (Version 1)
Quarter: 2016Q3

REPORT INFORMATION
  Report Type: Spontaneous
  Country: CA (occurrence: CA)
  Receive Date: 20160930
  Receipt Date: 20160930
  Transmission Date: 20161109
  Serious: Yes (Hospitalization)
  Sender: FDA-Public Use
  Company Number: CA-ACTELION-A-NJ2016-142909

PATIENT
  Age: 52 Year
  Sex: Female

DRUGS (3)
  1. ADCIRCA [Concomitant]
     Active Substance: TADALAFIL
  2. OPSUMIT [Suspect]
     Active Substance: MACITENTAN
     Indication: PULMONARY HYPERTENSION
     Dosage: 10 MG, QD
     Route: 048
  3. FUROSEMIDE. [Concomitant]
     Active Substance: FUROSEMIDE

REACTIONS (9)
  - White blood cell count increased [Unknown]
  - Bacterial infection [Unknown]
  - Sputum discoloured [Unknown]
  - Productive cough [Unknown]
  - Lung infection [Unknown]
  - Cough [Unknown]
  - Rhinorrhoea [Unknown]
  - Sinusitis [Unknown]
  - Condition aggravated [Unknown]
